FAERS Safety Report 5760700-8 (Version None)
Quarter: 2008Q2

REPORT INFORMATION
  Report Type: 
  Country: None (occurrence: None)
  Receive Date: 20080606
  Receipt Date: 20071210
  Transmission Date: 20081010
  Serious: No
  Sender: FDA-Public Use
  Company Number: US-BAYER-200716459NA

PATIENT
  Age: 35 Year
  Sex: Female
  Weight: 77 kg

DRUGS (2)
  1. MIRENA [Suspect]
     Indication: CONTRACEPTION
     Route: 015
     Dates: start: 20071204
  2. IBUROFEN [Concomitant]

REACTIONS (10)
  - ABDOMINAL PAIN [None]
  - AFFECT LABILITY [None]
  - BACK PAIN [None]
  - CRYING [None]
  - FATIGUE [None]
  - HEADACHE [None]
  - MOOD SWINGS [None]
  - NAUSEA [None]
  - SINUS HEADACHE [None]
  - SINUSITIS [None]
